FAERS Safety Report 6530127 (Version 2)
Quarter: 2018Q3

REPORT INFORMATION
  Report Type: Spontaneous
  Country: FR (occurrence: FR)
  Receive Date: 20080103
  Receipt Date: 20180911
  Transmission Date: 20181010
  Serious: Yes (Hospitalization, Other)
  Sender: FDA-Public Use
  Company Number: GXKR2007FR10918

PATIENT
  Age: 3 Year
  Sex: Female

DRUGS (4)
  1. COTRIMOXAZOLE [Suspect]
     Active Substance: SULFAMETHOXAZOLE\TRIMETHOPRIM
     Indication: DIARRHOEA
     Dosage: UNK
     Route: 065
     Dates: start: 200512
  2. CEFIXIME. [Suspect]
     Active Substance: CEFIXIME
     Indication: DIARRHOEA
  3. COTRIMOXAZOLE [Suspect]
     Active Substance: SULFAMETHOXAZOLE\TRIMETHOPRIM
     Indication: OCULAR ICTERUS
     Dosage: UNK
     Route: 065
     Dates: start: 2003, end: 2003
  4. CEFIXIME. [Suspect]
     Active Substance: CEFIXIME
     Indication: OCULAR ICTERUS
     Dosage: UNK, UNK
     Route: 065
     Dates: start: 200512

REACTIONS (10)
  - Pyrexia [Recovered/Resolved]
  - Acute kidney injury [Recovered/Resolved]
  - Proteinuria [Recovered/Resolved]
  - Monocytosis [Recovered/Resolved]
  - Eosinophilia [Recovered/Resolved]
  - Polyuria [Recovered/Resolved]
  - Leukocyturia [Recovered/Resolved]
  - Tubulointerstitial nephritis [Recovered/Resolved]
  - Drug reaction with eosinophilia and systemic symptoms [Recovering/Resolving]
  - Blood creatinine increased [Recovered/Resolved]
